FAERS Safety Report 9778805 (Version 3)
Quarter: 2014Q1

REPORT INFORMATION
  Report Type: Spontaneous
  Country: US (occurrence: US)
  Receive Date: 20131223
  Receipt Date: 20140124
  Transmission Date: 20141002
  Serious: No
  Sender: FDA-Public Use
  Company Number: US-009507513-1312USA010021

PATIENT
  Age: 28 Year
  Sex: Female

DRUGS (3)
  1. IMPLANON [Suspect]
     Indication: CONTRACEPTION
     Dosage: 68 MG, UNK
     Route: 059
     Dates: start: 201308
  2. IMPLANON [Suspect]
     Dosage: UNK
     Route: 059
  3. IMPLANON [Suspect]
     Dosage: UNK
     Route: 059
     Dates: end: 201308

REACTIONS (4)
  - Device deployment issue [Unknown]
  - Unintended pregnancy [Unknown]
  - Medical device complication [Unknown]
  - Drug dose omission [Unknown]
